FAERS Safety Report 8092958-7 (Version None)
Quarter: 2012Q1

REPORT INFORMATION
  Report Type: 
  Country: None (occurrence: None)
  Receive Date: 20120131
  Receipt Date: 20120120
  Transmission Date: 20120608
  Serious: Yes (Hospitalization)
  Sender: FDA-Public Use
  Company Number: US-BAYER-2011-114318

PATIENT
  Age: 23 Year
  Sex: Female

DRUGS (13)
  1. YASMIN [Suspect]
  2. AUGMENTIN '125' [Concomitant]
     Dosage: 875 MG, BID
     Route: 048
     Dates: start: 20020605
  3. PREDNISONE TAB [Concomitant]
     Dosage: UNK
     Route: 048
     Dates: start: 20020418, end: 20020516
  4. FLEXERIL [Concomitant]
     Dosage: 10 MG, TID
     Route: 048
  5. ADVAIR DISKUS 100/50 [Concomitant]
  6. YAZ [Suspect]
  7. PREVACID [Concomitant]
  8. DROSPIRENONE AND ETHINYL ESTRADIOL [Suspect]
  9. ZITHROMAX [Concomitant]
     Dosage: UNK
     Route: 048
     Dates: start: 20020605
  10. ALBUTEROL [Concomitant]
  11. NAPROSYN [Concomitant]
     Dosage: UNK UNK, BID
     Route: 048
     Dates: start: 20020609
  12. AMOXICILLIN [Concomitant]
     Dosage: 500 MG, TID
     Route: 048
     Dates: start: 20020529, end: 20020605
  13. VICODIN [Concomitant]
     Dosage: UNK UNK, PRN
     Route: 048
     Dates: start: 20020609

REACTIONS (3)
  - INJURY [None]
  - DEEP VEIN THROMBOSIS [None]
  - PAIN [None]
